FAERS Safety Report 16774648 (Version 1)
Quarter: 2019Q3

REPORT INFORMATION
  Report Type: Spontaneous
  Country: SE (occurrence: SE)
  Receive Date: 20190905
  Receipt Date: 20190905
  Transmission Date: 20191005
  Serious: Yes (Life-Threatening)
  Sender: FDA-Public Use
  Company Number: SE-TEVA-2019-SE-1101128

PATIENT
  Age: 45 Year
  Sex: Male
  Weight: 65 kg

DRUGS (1)
  1. ATORVASTATIN TEVA 80 MG FILMDRAGERAD TABLETT [Suspect]
     Active Substance: ATORVASTATIN
     Indication: PROPHYLAXIS
     Dosage: 1 TABLET PER DAY; 80 MG
     Dates: start: 20180401, end: 20180901

REACTIONS (7)
  - Back pain [Unknown]
  - Anaemia [Unknown]
  - Hepatic failure [Unknown]
  - Ascites [Unknown]
  - Liver function test increased [Recovering/Resolving]
  - Hepatic cirrhosis [Unknown]
  - Myalgia [Unknown]

NARRATIVE: CASE EVENT DATE: 20180501
